FAERS Safety Report 5495385-1 (Version None)
Quarter: 2007Q4

REPORT INFORMATION
  Report Type: 
  Country: None (occurrence: None)
  Receive Date: 20071023
  Receipt Date: 20071010
  Transmission Date: 20080405
  Serious: Yes (Hospitalization)
  Sender: FDA-Public Use
  Company Number: GXKR2007US08746

PATIENT
  Age: 14 Year
  Sex: Male

DRUGS (2)
  1. ASPIRIN [Suspect]
     Indication: THROMBOSIS PROPHYLAXIS
  2. IBUPROFEN [Suspect]
     Indication: PYREXIA
     Dosage: 300 MG, Q6H,

REACTIONS (9)
  - AZOTAEMIA [None]
  - BLOOD POTASSIUM INCREASED [None]
  - DIALYSIS [None]
  - DISORIENTATION [None]
  - DRUG HYPERSENSITIVITY [None]
  - NEPHRITIS INTERSTITIAL [None]
  - ORAL INTAKE REDUCED [None]
  - PAIN [None]
  - RENAL FAILURE ACUTE [None]
